FAERS Safety Report 7524927-7 (Version None)
Quarter: 2011Q2

REPORT INFORMATION
  Report Type: 
  Country: None (occurrence: None)
  Receive Date: 20110606
  Receipt Date: 20110531
  Transmission Date: 20111010
  Serious: No
  Sender: FDA-Public Use
  Company Number: US-TEVA-284497USA

PATIENT
  Sex: Female
  Weight: 104.42 kg

DRUGS (2)
  1. PLAN B ONE-STEP [Suspect]
     Indication: POST COITAL CONTRACEPTION
     Dosage: 1.5 MILLIGRAM;
     Route: 048
     Dates: start: 20110526, end: 20110526
  2. ISONIAZID [Concomitant]
     Indication: EXPOSURE TO COMMUNICABLE DISEASE
     Dosage: 100 MILLIGRAM;
     Dates: start: 20110301

REACTIONS (4)
  - BREAST PAIN [None]
  - FATIGUE [None]
  - MENSTRUATION IRREGULAR [None]
  - ABDOMINAL PAIN [None]
